FAERS Safety Report 22185787 (Version 1)
Quarter: 2023Q2

REPORT INFORMATION
  Report Type: Spontaneous
  Country: ES (occurrence: None)
  Receive Date: 20230407
  Receipt Date: 20230407
  Transmission Date: 20230722
  Serious: Yes (Other)
  Sender: FDA-Public Use
  Company Number: 2023A075684

PATIENT
  Age: 42 Year
  Sex: Female
  Weight: 73.9 kg

DRUGS (2)
  1. BENRALIZUMAB [Suspect]
     Active Substance: BENRALIZUMAB
     Indication: Asthma
     Route: 058
     Dates: start: 20221207
  2. METHYLPREDNISOLONE [Concomitant]
     Active Substance: METHYLPREDNISOLONE
     Indication: Asthma

REACTIONS (2)
  - Pituitary haemorrhage [Unknown]
  - Headache [Unknown]

NARRATIVE: CASE EVENT DATE: 20221201
